FAERS Safety Report 8726216 (Version 3)
Quarter: 2012Q4

REPORT INFORMATION
  Report Type: Report from Study
  Country: US (occurrence: US)
  Receive Date: 20120816
  Receipt Date: 20120925
  Transmission Date: 20130627
  Serious: Yes (Hospitalization)
  Sender: FDA-Public Use
  Company Number: US-PFIZER INC-2012195037

PATIENT
  Age: 79 Year
  Sex: Male

DRUGS (2)
  1. UNSPECIFIED INGREDIENT [Suspect]
     Indication: RENAL CELL CARCINOMA
     Dosage: UNK
     Route: 042
     Dates: start: 20111004, end: 20120612
  2. AXITINIB [Concomitant]
     Indication: RENAL CELL CARCINOMA
     Dosage: 5 mg, 2x/day
     Dates: start: 20120716, end: 20120723

REACTIONS (3)
  - Transaminases increased [Unknown]
  - Blood alkaline phosphatase increased [Unknown]
  - Hyperbilirubinaemia [Unknown]
